FAERS Safety Report 15643798 (Version 2)
Quarter: 2019Q1

REPORT INFORMATION
  Report Type: Spontaneous
  Country: US (occurrence: US)
  Receive Date: 20181121
  Receipt Date: 20190325
  Transmission Date: 20190417
  Serious: Yes (Other)
  Sender: FDA-Public Use
  Company Number: US-COOPERSURGICAL, INC.-US-2018CPS033696

PATIENT

DRUGS (1)
  1. PARAGARD T 380A [Suspect]
     Active Substance: COPPER
     Indication: CONTRACEPTION
     Dosage: UNK
     Route: 015
     Dates: start: 20140328, end: 20181105

REACTIONS (15)
  - Embedded device [Recovered/Resolved]
  - Procedural pain [Unknown]
  - Vomiting [Unknown]
  - Complication of device removal [Recovered/Resolved]
  - Hypertension [Unknown]
  - Vertigo [Unknown]
  - Pain [Unknown]
  - Tachycardia [Unknown]
  - Dizziness [Unknown]
  - Device breakage [Recovered/Resolved]
  - Abdominal pain [Unknown]
  - Device expulsion [Recovered/Resolved]
  - Foreign body in reproductive tract [Recovered/Resolved]
  - Nausea [Unknown]
  - Somnolence [Unknown]

NARRATIVE: CASE EVENT DATE: 20181012
